FAERS Safety Report 11821353 (Version 1)
Quarter: 2015Q4

REPORT INFORMATION
  Report Type: Spontaneous
  Country: US (occurrence: US)
  Receive Date: 20151210
  Receipt Date: 20151210
  Transmission Date: 20160305
  Serious: Yes (Hospitalization)
  Sender: FDA-Public Use
  Company Number: US-JNJFOC-20150605562

PATIENT
  Age: 69 Year
  Sex: Female

DRUGS (4)
  1. AMLODIPINE [Concomitant]
     Active Substance: AMLODIPINE BESYLATE
  2. IMBRUVICA [Suspect]
     Active Substance: IBRUTINIB
     Indication: CHRONIC LYMPHOCYTIC LEUKAEMIA
     Route: 048
     Dates: start: 20141119
  3. LISINOPRIL. [Concomitant]
     Active Substance: LISINOPRIL
  4. BISOPROLOL [Concomitant]
     Active Substance: BISOPROLOL

REACTIONS (6)
  - Dyspepsia [Unknown]
  - Hypertension [Unknown]
  - Burning sensation [Unknown]
  - Pyrexia [Unknown]
  - Poor quality sleep [Unknown]
  - Dry mouth [Unknown]

NARRATIVE: CASE EVENT DATE: 20141121
